FAERS Safety Report 5312876-4 (Version None)
Quarter: 2007Q2

REPORT INFORMATION
  Report Type: 
  Country: None (occurrence: None)
  Receive Date: 20070430
  Receipt Date: 20070421
  Transmission Date: 20071010
  Serious: Yes (Disabling, Other)
  Sender: FDA-Public Use
  Company Number: CA-ABBOTT-07P-028-0364273-00

PATIENT
  Sex: Female
  Weight: 67.8 kg

DRUGS (12)
  1. BIAXIN XL [Suspect]
     Indication: BRONCHITIS
     Dates: start: 20060914, end: 20060918
  2. ATORVASTATIN CALCIUM [Concomitant]
     Indication: DRUG USE FOR UNKNOWN INDICATION
  3. ACEI [Concomitant]
     Indication: DRUG USE FOR UNKNOWN INDICATION
  4. TELMISARTAN [Concomitant]
     Indication: BLOOD PRESSURE MANAGEMENT
  5. RABEPRAZOLE SODIUM [Concomitant]
     Indication: GASTROOESOPHAGEAL REFLUX DISEASE
  6. CRESTOR [Concomitant]
     Indication: DRUG USE FOR UNKNOWN INDICATION
  7. VITAMINS [Concomitant]
     Indication: DRUG USE FOR UNKNOWN INDICATION
  8. CALCIUM CHLORIDE [Concomitant]
     Indication: DRUG USE FOR UNKNOWN INDICATION
  9. GARLIC [Concomitant]
     Indication: DRUG USE FOR UNKNOWN INDICATION
  10. FLAX [Concomitant]
     Indication: DRUG USE FOR UNKNOWN INDICATION
  11. SALMON OIL [Concomitant]
     Indication: DRUG USE FOR UNKNOWN INDICATION
  12. B12 [Concomitant]
     Indication: DRUG USE FOR UNKNOWN INDICATION

REACTIONS (11)
  - HENOCH-SCHONLEIN PURPURA [None]
  - LEUKOCYTOCLASTIC VASCULITIS [None]
  - MYALGIA [None]
  - NECK PAIN [None]
  - NEPHROSCLEROSIS [None]
  - OEDEMA PERIPHERAL [None]
  - PAIN IN EXTREMITY [None]
  - POLYMYALGIA RHEUMATICA [None]
  - PROTEINURIA [None]
  - RENAL FAILURE [None]
  - VENOUS INSUFFICIENCY [None]
